FAERS Safety Report 9052693 (Version 3)
Quarter: 2014Q1

REPORT INFORMATION
  Report Type: Spontaneous
  Country: FR (occurrence: FR)
  Receive Date: 20130207
  Receipt Date: 20140210
  Transmission Date: 20141002
  Serious: Yes (Hospitalization, Other)
  Sender: FDA-Public Use
  Company Number: FR-TEVA-385000USA

PATIENT
  Age: 58 Year
  Sex: Male

DRUGS (4)
  1. BENDAMUSTINE [Suspect]
     Indication: PLASMA CELL MYELOMA
     Route: 042
     Dates: start: 20120927
  2. VELCADE [Suspect]
     Indication: PLASMA CELL MYELOMA
     Dates: start: 20120927
  3. DEXAMETHASONE [Suspect]
     Indication: PLASMA CELL MYELOMA
     Dates: start: 20120927
  4. LENALIDOMIDE [Suspect]
     Indication: PLASMA CELL MYELOMA
     Dates: start: 20120927

REACTIONS (4)
  - Hypercalcaemia [Recovered/Resolved]
  - Plasma cell myeloma [Unknown]
  - Blood creatinine increased [Unknown]
  - Renal failure acute [Unknown]
